FAERS Safety Report 17920888 (Version 1)
Quarter: 2020Q2

REPORT INFORMATION
  Report Type: Report from Study
  Country: US (occurrence: US)
  Receive Date: 20200622
  Receipt Date: 20200622
  Transmission Date: 20200714
  Serious: Yes (Death)
  Sender: FDA-Public Use
  Company Number: US-TAIHO ONCOLOGY  INC-EU-2020-02191

PATIENT
  Age: 50 Year
  Sex: Female

DRUGS (13)
  1. LONSURF [Suspect]
     Active Substance: TIPIRACIL HYDROCHLORIDE\TRIFLURIDINE
     Indication: COLON CANCER
     Route: 048
  2. ELIQUIS [Concomitant]
     Active Substance: APIXABAN
  3. ONDANSETRON [Concomitant]
     Active Substance: ONDANSETRON
  4. PAROXETINE. [Concomitant]
     Active Substance: PAROXETINE
  5. PROPRANOLOL [Concomitant]
     Active Substance: PROPRANOLOL HYDROCHLORIDE
  6. CARAFATE [Concomitant]
     Active Substance: SUCRALFATE
  7. SUCRALFATE. [Concomitant]
     Active Substance: SUCRALFATE
  8. FENTANYL. [Concomitant]
     Active Substance: FENTANYL
  9. VITAMIN D2 [Concomitant]
     Active Substance: ERGOCALCIFEROL
  10. OLANZAPINE. [Concomitant]
     Active Substance: OLANZAPINE
  11. ESOMEPRAZOLE MAGNESIUM. [Concomitant]
     Active Substance: ESOMEPRAZOLE MAGNESIUM
  12. STIVARGA [Suspect]
     Active Substance: REGORAFENIB
     Indication: PRODUCT USED FOR UNKNOWN INDICATION
  13. TEMAZEPAM. [Concomitant]
     Active Substance: TEMAZEPAM

REACTIONS (1)
  - Death [Fatal]

NARRATIVE: CASE EVENT DATE: 20200608
